FAERS Safety Report 4493658-2 (Version None)
Quarter: 2004Q3

REPORT INFORMATION
  Report Type: 
  Country: None (occurrence: None)
  Receive Date: 20040921
  Receipt Date: 20040122
  Transmission Date: 20050211
  Serious: Yes (Death, Hospitalization, Other)
  Sender: FDA-Public Use
  Company Number: 163-20785-04010603

PATIENT
  Age: 83 Year
  Sex: Male
  Weight: 86.2 kg

DRUGS (7)
  1. THALOMID [Suspect]
     Indication: MULTIPLE MYELOMA
     Dosage: 50 MG, DAILY, ORAL
     Route: 048
     Dates: start: 20030424, end: 20030919
  2. THALOMID [Suspect]
     Indication: MULTIPLE MYELOMA
     Dosage: 50 MG, DAILY, ORAL
     Route: 048
     Dates: start: 20031027, end: 20040501
  3. PREDNISONE [Suspect]
     Indication: MULTIPLE MYELOMA
     Dosage: 50 MG, QOD
     Dates: start: 20031027, end: 20040501
  4. DOXIL [Suspect]
     Indication: MULTIPLE MYELOMA
     Dosage: 40 MG/;M2, Q28 DAYS, INTRAVENOUS
     Route: 042
     Dates: start: 20030424, end: 20030919
  5. VINCRISTINE [Suspect]
     Indication: MULTIPLE MYELOMA
     Dosage: 1.5 MG, Q28 DAYS, INTRAVENOUS
     Route: 042
     Dates: start: 20030424, end: 20030919
  6. DECADRON [Suspect]
     Indication: MULTIPLE MYELOMA
     Dosage: 40 MG, QD Z 4 DAYS, ORAL
     Route: 048
     Dates: start: 20030424, end: 20030919
  7. NITROGLYCERINE (GLYCERYL TRINITRATE) [Concomitant]

REACTIONS (5)
  - BRADYCARDIA [None]
  - CARDIAC ARREST [None]
  - DEATH [None]
  - DIZZINESS [None]
  - MYOCARDIAL INFARCTION [None]
